FAERS Safety Report 7831996-3 (Version None)
Quarter: 2011Q4

REPORT INFORMATION
  Report Type: 
  Country: None (occurrence: None)
  Receive Date: 20111021
  Receipt Date: 20111011
  Transmission Date: 20120403
  Serious: Yes (Other)
  Sender: FDA-Public Use
  Company Number: GB-ROCHE-798199

PATIENT
  Sex: Female

DRUGS (9)
  1. ORAMORPH SR [Concomitant]
  2. VEMURAFENIB [Suspect]
     Indication: MALIGNANT MELANOMA
     Dosage: LAST DOSE PRIOR TO SAE: 28 JUNE 2011
     Route: 048
     Dates: start: 20100907, end: 20110629
  3. VEMURAFENIB [Suspect]
     Route: 048
  4. DIAZEPAM [Concomitant]
  5. LOPERAMIDE HCL [Concomitant]
  6. ACETAMINOPHEN AND CODEINE PHOSPHATE [Concomitant]
  7. AMITRIPTYLINE HCL [Concomitant]
  8. PAROXETINE HCL [Concomitant]
  9. OMEGA-3 TRIGLYCERIDES [Concomitant]
     Dates: start: 20050101, end: 20110608

REACTIONS (1)
  - OSTEOMYELITIS [None]
